FAERS Safety Report 4693501-2 (Version None)
Quarter: 2005Q2

REPORT INFORMATION
  Report Type: 
  Country: None (occurrence: None)
  Receive Date: 20050617
  Receipt Date: 20050615
  Transmission Date: 20051028
  Serious: Yes (Death)
  Sender: FDA-Public Use
  Company Number: PHBS2005JP08530

PATIENT
  Age: 13 Year
  Sex: 0
  Weight: 20 kg

DRUGS (3)
  1. NEORAL [Concomitant]
     Indication: LIVER TRANSPLANT
     Route: 048
  2. TEGRETOL [Suspect]
     Indication: CONVULSION
     Dosage: 400 MG/DAY
     Route: 048
  3. SOLU-MEDROL [Concomitant]

REACTIONS (1)
  - HEPATIC NEOPLASM MALIGNANT RECURRENT [None]
